FAERS Safety Report 14323863 (Version 1)
Quarter: 2017Q4

REPORT INFORMATION
  Report Type: Other
  Country: TN (occurrence: TN)
  Receive Date: 20171226
  Receipt Date: 20171226
  Transmission Date: 20180321
  Serious: Yes (Hospitalization)
  Sender: FDA-Public Use
  Company Number: TN-LEADING PHARMA-2037765

PATIENT

DRUGS (1)
  1. FUROSEMIDE TABLETS , 20 MG, 40 MG AND 80 MG [Suspect]
     Active Substance: FUROSEMIDE

REACTIONS (1)
  - Pancreatitis acute [Unknown]
